FAERS Safety Report 7243767-X (Version None)
Quarter: 2011Q1

REPORT INFORMATION
  Report Type: 
  Country: None (occurrence: None)
  Receive Date: 20110125
  Receipt Date: 20110119
  Transmission Date: 20110831
  Serious: No
  Sender: FDA-Public Use
  Company Number: US-PFIZER INC-2010176231

PATIENT
  Sex: Female
  Weight: 62.6 kg

DRUGS (10)
  1. MULTIVITE [Concomitant]
  2. ACETYLSALICYLIC ACID [Concomitant]
     Dosage: 81 MG, UNK
     Route: 048
  3. FISH OIL [Concomitant]
  4. AMBIEN [Concomitant]
     Dosage: 10 MG, HS PRN
  5. VITAMIN D [Concomitant]
  6. TRAZODONE [Concomitant]
     Dosage: 50 HS PRN
  7. MELATONIN [Concomitant]
  8. VITAMIN E [Concomitant]
  9. ESTRING [Suspect]
     Indication: ATROPHIC VULVOVAGINITIS
     Dosage: 2 MG, UNK
     Route: 067
     Dates: start: 20110103, end: 20110106
  10. ESTRING [Suspect]
     Dosage: CONTINUOUS
     Route: 067
     Dates: start: 20110103, end: 20110106

REACTIONS (2)
  - VAGINAL DISCHARGE [None]
  - PELVIC PAIN [None]
